FAERS Safety Report 25192330 (Version 1)
Quarter: 2025Q2

REPORT INFORMATION
  Report Type: Spontaneous
  Country: US (occurrence: None)
  Receive Date: 20250411
  Receipt Date: 20250411
  Transmission Date: 20250717
  Serious: Yes (Hospitalization)
  Sender: FDA-CTU
  Company Number: None

PATIENT
  Sex: Female

DRUGS (5)
  1. WINREVAIR [Suspect]
     Active Substance: SOTATERCEPT-CSRK
     Indication: Pulmonary arterial hypertension
     Route: 058
     Dates: start: 20240812
  2. REMODULIN [Suspect]
     Active Substance: TREPROSTINIL
  3. C-TREPROSTINIL 0.2MG/ML [Concomitant]
  4. STERILE DILUENT FOR REMODULIN [Concomitant]
     Active Substance: WATER
  5. WINREVAIR [Concomitant]
     Active Substance: SOTATERCEPT-CSRK

REACTIONS (1)
  - Ventricular fibrillation [None]
